FAERS Safety Report 7115661-6 (Version None)
Quarter: 2010Q4

REPORT INFORMATION
  Report Type: 
  Country: None (occurrence: None)
  Receive Date: 20101122
  Receipt Date: 20101108
  Transmission Date: 20110411
  Serious: Yes (Hospitalization)
  Sender: FDA-Public Use
  Company Number: US-ELI_LILLY_AND_COMPANY-US201011002559

PATIENT
  Sex: Female
  Weight: 64.853 kg

DRUGS (6)
  1. GEMCITABINE HCL [Suspect]
     Indication: BREAST CANCER
     Dosage: 2460 MG, OTHER
     Route: 042
     Dates: start: 20101008, end: 20101022
  2. DOXORUBICIN HCL [Suspect]
     Indication: BREAST CANCER
     Dosage: UNK, UNKNOWN
     Route: 065
     Dates: start: 20100813, end: 20100924
  3. CYCLOPHOSPHAMIDE [Suspect]
     Indication: BREAST CANCER
     Dosage: UNK, UNKNOWN
     Route: 065
     Dates: start: 20100813, end: 20100924
  4. PACLITAXEL [Suspect]
     Indication: BREAST CANCER
     Dosage: UNK, UNKNOWN
     Route: 065
     Dates: start: 20101008, end: 20101022
  5. BEVACIZUMAB [Suspect]
     Indication: BREAST CANCER
     Dosage: UNK, OTHER
     Route: 042
     Dates: start: 20101008, end: 20101022
  6. NEULASTA [Concomitant]
     Dosage: 4 MG, UNKNOWN
     Route: 065
     Dates: start: 20101022

REACTIONS (7)
  - ANAEMIA [None]
  - BACTERIAL INFECTION [None]
  - BREAST CELLULITIS [None]
  - CULTURE URINE POSITIVE [None]
  - FEBRILE NEUTROPENIA [None]
  - HAEMOGLOBIN DECREASED [None]
  - PROCEDURAL PAIN [None]
